FAERS Safety Report 6906067-0 (Version None)
Quarter: 2010Q3

REPORT INFORMATION
  Report Type: 
  Country: None (occurrence: None)
  Receive Date: 20100803
  Receipt Date: 20100803
  Transmission Date: 20110219
  Serious: Yes (Other)
  Sender: FDA-Public Use
  Company Number: None

PATIENT
  Age: 79 Year
  Sex: Male
  Weight: 62.3 kg

DRUGS (8)
  1. METOPROLOL TARTRATE [Suspect]
     Indication: HYPERTENSION
     Dosage: 100MG BID 047
     Dates: start: 20100126
  2. METOPROLOL TARTRATE [Suspect]
     Dosage: 100MG BID 047
     Dates: start: 20100511
  3. METOPROLOL TARTRATE [Suspect]
  4. AMOXICILLIN [Suspect]
  5. TRUSOPT [Concomitant]
  6. DYAZIDE [Concomitant]
  7. VIAGRA [Concomitant]
  8. AMLODIPINE [Concomitant]

REACTIONS (6)
  - BLOOD PRESSURE DECREASED [None]
  - FATIGUE [None]
  - OEDEMA [None]
  - PRODUCT CONTAMINATION CHEMICAL [None]
  - PRODUCT SUBSTITUTION ISSUE [None]
  - PULSE ABNORMAL [None]
